FAERS Safety Report 23363262 (Version 2)
Quarter: 2024Q1

REPORT INFORMATION
  Report Type: Spontaneous
  Country: JP (occurrence: JP)
  Receive Date: 20240103
  Receipt Date: 20240313
  Transmission Date: 20240410
  Serious: Yes (Other)
  Sender: FDA-Public Use
  Company Number: JP-Harrow Eye-2150100

PATIENT
  Sex: Male

DRUGS (1)
  1. NEVANAC [Suspect]
     Active Substance: NEPAFENAC
     Route: 047

REACTIONS (2)
  - Glaucoma [Not Recovered/Not Resolved]
  - Diabetic retinopathy [Recovering/Resolving]
